FAERS Safety Report 5368981-X (Version None)
Quarter: 2007Q2

REPORT INFORMATION
  Report Type: 
  Country: None (occurrence: None)
  Receive Date: 20070625
  Receipt Date: 20061121
  Transmission Date: 20071010
  Serious: No
  Sender: FDA-Public Use
  Company Number: US-ASTRAZENECA-2006UW25837

PATIENT
  Age: 53 Year
  Sex: Male
  Weight: 89.4 kg

DRUGS (2)
  1. CRESTOR [Suspect]
     Indication: BLOOD CHOLESTEROL INCREASED
     Route: 048
  2. ATENOLOL [Concomitant]

REACTIONS (5)
  - CHROMATURIA [None]
  - FATIGUE [None]
  - MICTURITION URGENCY [None]
  - PAIN [None]
  - PAIN IN EXTREMITY [None]
